FAERS Safety Report 9227082 (Version 1)
Quarter: 2013Q1

REPORT INFORMATION
  Report Type: Spontaneous
  Country: US (occurrence: None)
  Receive Date: 20120927
  Receipt Date: 20120927
  Transmission Date: 20140127
  Serious: Yes (Congenital Anomaly)
  Sender: FDA-Public Use
  Company Number: 2012-00425

PATIENT
  Sex: 0

DRUGS (3)
  1. LAMOTRIGINE (UNKNOWN) [Suspect]
     Indication: CONVULSION
     Dosage: STOPPED
     Route: 064
  2. VALPROATE [Suspect]
     Indication: CONVULSION
     Dosage: (500 MG AT LAST MENSTRUAL PERIOD (UNKNOWN) TRANSPLACENTAL?
  3. TOPIRAMATE (UNKNOWN) [Suspect]
     Indication: CONVULSION
     Dosage: 400 MG (UNKNOWN) TRANSPLACENTAL?
     Route: 064

REACTIONS (1)
  - Syndactyly [None]
